FAERS Safety Report 8268715-5 (Version None)
Quarter: 2012Q2

REPORT INFORMATION
  Report Type: 
  Country: None (occurrence: None)
  Receive Date: 20120409
  Receipt Date: 20120327
  Transmission Date: 20120825
  Serious: Yes (Other)
  Sender: FDA-Public Use
  Company Number: US-ROCHE-1054221

PATIENT
  Sex: Female

DRUGS (1)
  1. BONIVA [Suspect]
     Indication: PRODUCT USED FOR UNKNOWN INDICATION

REACTIONS (6)
  - HIP FRACTURE [None]
  - ARTHROPATHY [None]
  - UNEVALUABLE EVENT [None]
  - FALL [None]
  - BALANCE DISORDER [None]
  - LUNG NEOPLASM MALIGNANT [None]
